FAERS Safety Report 4346087-6 (Version None)
Quarter: 2004Q1

REPORT INFORMATION
  Report Type: 
  Country: None (occurrence: None)
  Receive Date: 20040325
  Receipt Date: 20040205
  Transmission Date: 20041129
  Serious: No
  Sender: FDA-Public Use
  Company Number: USA030434245

PATIENT
  Age: 76 Year
  Sex: Female
  Weight: 51 kg

DRUGS (7)
  1. FORTEO [Suspect]
     Indication: OSTEOPOROSIS
     Dosage: 20 UG/DAY
     Dates: start: 20030401
  2. EVISTA [Suspect]
     Dates: start: 20020801, end: 20030402
  3. FOSAMAX [Concomitant]
  4. LEXAPRO [Concomitant]
  5. KLONOPIN [Concomitant]
  6. CELEXA [Concomitant]
  7. HAWTHORN [Concomitant]

REACTIONS (9)
  - ANXIETY [None]
  - ASTHENIA [None]
  - FATIGUE [None]
  - HEADACHE [None]
  - INJECTION SITE DISCOLOURATION [None]
  - INJECTION SITE ERYTHEMA [None]
  - INJECTION SITE HAEMORRHAGE [None]
  - MUSCLE CRAMP [None]
  - SOMNOLENCE [None]
